FAERS Safety Report 8190811-1 (Version None)
Quarter: 2012Q1

REPORT INFORMATION
  Report Type: 
  Country: None (occurrence: None)
  Receive Date: 20120307
  Receipt Date: 20120301
  Transmission Date: 20120608
  Serious: Yes (Hospitalization, Other)
  Sender: FDA-Public Use
  Company Number: RU-ABBOTT-12P-251-0910157-00

PATIENT
  Age: 10 Year
  Sex: Male

DRUGS (2)
  1. HUMIRA [Suspect]
  2. HUMIRA [Suspect]
     Indication: CROHN'S DISEASE
     Route: 058

REACTIONS (1)
  - ACUTE LEUKAEMIA [None]
